FAERS Safety Report 13085720 (Version 2)
Quarter: 2017Q1

REPORT INFORMATION
  Report Type: Report from Study
  Country: MX (occurrence: MX)
  Receive Date: 20170104
  Receipt Date: 20170111
  Transmission Date: 20170428
  Serious: Yes (Other)
  Sender: FDA-Public Use
  Company Number: PHHY2017MX000624

PATIENT
  Sex: Female

DRUGS (1)
  1. STALEVO [Suspect]
     Active Substance: CARBIDOPA\ENTACAPONE\LEVODOPA
     Indication: PARKINSON^S DISEASE
     Dosage: 1 DF, (CARBIDOPA 25 MG, LEVODOPA 100 MG, ENTACAPONE 200 MG), Q12H
     Route: 065
     Dates: start: 2012

REACTIONS (4)
  - Arthritis [Unknown]
  - Asthenia [Unknown]
  - Disease recurrence [Unknown]
  - Pain in extremity [Unknown]
